FAERS Safety Report 7244813-X (Version None)
Quarter: 2011Q1

REPORT INFORMATION
  Report Type: 
  Country: None (occurrence: None)
  Receive Date: 20110126
  Receipt Date: 20110120
  Transmission Date: 20110831
  Serious: Yes (Hospitalization)
  Sender: FDA-Public Use
  Company Number: US-SHIRE-SPV1-2011-00104

PATIENT
  Age: 18 Month
  Sex: Male

DRUGS (1)
  1. VYVANSE [Suspect]
     Indication: PRODUCT USED FOR UNKNOWN INDICATION
     Dosage: 40 MG, UNKNOWN
     Route: 048

REACTIONS (8)
  - RESPIRATORY RATE INCREASED [None]
  - AGITATION [None]
  - HALLUCINATION [None]
  - ACCIDENTAL EXPOSURE [None]
  - HAEMORRHAGE [None]
  - HYPERTHERMIA [None]
  - PSYCHOMOTOR HYPERACTIVITY [None]
  - TACHYCARDIA [None]
